FAERS Safety Report 7127326-5 (Version None)
Quarter: 2010Q4

REPORT INFORMATION
  Report Type: 
  Country: None (occurrence: None)
  Receive Date: 20101129
  Receipt Date: 20091113
  Transmission Date: 20110411
  Serious: No
  Sender: FDA-Public Use
  Company Number: US-PFIZER INC-2006036026

PATIENT
  Sex: Female
  Weight: 66.7 kg

DRUGS (19)
  1. REVATIO [Suspect]
     Indication: PULMONARY HYPERTENSION
     Dosage: 20 MG, 3X/DAY
     Route: 048
     Dates: start: 20060102, end: 20060101
  2. TRACLEER [Concomitant]
     Dosage: UNK
  3. NIFEDIPINE [Concomitant]
     Route: 065
  4. PREDNISONE [Concomitant]
     Route: 065
  5. DETROL [Concomitant]
     Route: 065
  6. FOLIC ACID [Concomitant]
     Route: 065
  7. OMEPRAZOLE [Concomitant]
     Route: 065
  8. ACTONEL [Concomitant]
     Route: 065
  9. MAGNESIUM [Concomitant]
     Route: 065
  10. VITAMIN B-12 [Concomitant]
     Route: 065
  11. VITAMIN B6 [Concomitant]
     Route: 065
  12. CALCIUM WITH VITAMIN D [Concomitant]
     Route: 065
  13. LOVAZA [Concomitant]
     Route: 065
  14. MULTI-VITAMINS [Concomitant]
     Route: 065
  15. VITAMIN E [Concomitant]
     Route: 065
  16. ASPIRIN [Concomitant]
     Route: 065
  17. CYTOXAN [Concomitant]
     Route: 042
  18. MOTILIUM-M [Concomitant]
     Route: 065
  19. GLUCOSAMINE W/CHONDROITIN SULFATES [Concomitant]
     Route: 065

REACTIONS (4)
  - BLOOD PRESSURE INCREASED [None]
  - DIARRHOEA [None]
  - DRUG INEFFECTIVE [None]
  - PULMONARY HYPERTENSION [None]
